FAERS Safety Report 16218494 (Version 2)
Quarter: 2019Q2

REPORT INFORMATION
  Report Type: Spontaneous
  Country: US (occurrence: US)
  Receive Date: 20190419
  Receipt Date: 20190423
  Transmission Date: 20190711
  Serious: Yes (Other)
  Sender: FDA-Public Use
  Company Number: US-GILEAD-2019-0402750

PATIENT
  Age: 63 Year
  Sex: Male

DRUGS (7)
  1. MINERAL OIL. [Concomitant]
     Active Substance: MINERAL OIL
  2. SPIRONOLACTONE. [Concomitant]
     Active Substance: SPIRONOLACTONE
  3. VOSEVI [Suspect]
     Active Substance: SOFOSBUVIR\VELPATASVIR\VOXILAPREVIR
     Indication: HEPATOCELLULAR CARCINOMA
  4. ALEVE [Concomitant]
     Active Substance: NAPROXEN SODIUM
  5. CALM PLUS [Concomitant]
  6. VOSEVI [Suspect]
     Active Substance: SOFOSBUVIR\VELPATASVIR\VOXILAPREVIR
     Indication: CHRONIC HEPATITIS C
     Dosage: 1 DOSAGE FORM
     Route: 048
     Dates: start: 201801
  7. PANTOPRAZOLE SODIUM. [Concomitant]
     Active Substance: PANTOPRAZOLE SODIUM

REACTIONS (4)
  - Treatment failure [Unknown]
  - Hepatic neoplasm [Unknown]
  - Jaundice [Unknown]
  - Chromaturia [Unknown]
